FAERS Safety Report 12079851 (Version 1)
Quarter: 2016Q1

REPORT INFORMATION
  Report Type: Spontaneous
  Country: US (occurrence: US)
  Receive Date: 20160216
  Receipt Date: 20160216
  Transmission Date: 20160526
  Serious: No
  Sender: FDA-Public Use
  Company Number: US-PFIZER INC-2016079202

PATIENT
  Age: 45 Year
  Sex: Female

DRUGS (1)
  1. IBRANCE [Suspect]
     Active Substance: PALBOCICLIB
     Indication: BREAST CANCER FEMALE
     Dosage: 125 MG, CYCLIC QD (21 DAYS ON/7 DAYS OFF)
     Route: 048
     Dates: start: 20160127

REACTIONS (4)
  - Pruritus [Unknown]
  - Skin disorder [Unknown]
  - Peripheral swelling [Unknown]
  - Diarrhoea [Unknown]
